FAERS Safety Report 8211658-3 (Version None)
Quarter: 2012Q1

REPORT INFORMATION
  Report Type: 
  Country: None (occurrence: None)
  Receive Date: 20120228
  Receipt Date: 20110824
  Transmission Date: 20120608
  Serious: Yes (Hospitalization, Other)
  Sender: FDA-Public Use
  Company Number: RB-31784-2011

PATIENT
  Age: 35 Year
  Sex: Male

DRUGS (2)
  1. SUBOXONE [Suspect]
     Indication: DRUG DEPENDENCE
     Dosage: (8 MG TID SUBLINGUAL)
     Route: 060
     Dates: start: 20070101
  2. SUBUTEX [Suspect]
     Indication: DRUG DEPENDENCE
     Dosage: (UNKNOWN DOSE UNKNOWN)

REACTIONS (3)
  - ROAD TRAFFIC ACCIDENT [None]
  - FALL [None]
  - RIB FRACTURE [None]
